FAERS Safety Report 8717101 (Version 2)
Quarter: 2013Q4

REPORT INFORMATION
  Report Type: Spontaneous
  Country: US (occurrence: US)
  Receive Date: 20120810
  Receipt Date: 20131031
  Transmission Date: 20140711
  Serious: No
  Sender: FDA-Public Use
  Company Number: US-009507513-2012SP032515

PATIENT
  Sex: Male

DRUGS (1)
  1. SYLATRON [Suspect]
     Indication: MALIGNANT MELANOMA
     Dosage: 1.5 MICROGRAM/KILOGRAM
     Route: 058
     Dates: start: 20120404, end: 20120606

REACTIONS (1)
  - Neutropenia [Not Recovered/Not Resolved]
